FAERS Safety Report 10197313 (Version 1)
Quarter: 2014Q2

REPORT INFORMATION
  Report Type: Spontaneous
  Country: US (occurrence: US)
  Receive Date: 20140527
  Receipt Date: 20140527
  Transmission Date: 20141212
  Serious: Yes (Other)
  Sender: FDA-Public Use
  Company Number: US-JNJFOC-20140512111

PATIENT
  Age: 70 Year
  Sex: Male
  Weight: 59.42 kg

DRUGS (14)
  1. INVOKANA [Suspect]
     Indication: TYPE 2 DIABETES MELLITUS
     Route: 048
     Dates: start: 20140504
  2. METFORMIN ER [Concomitant]
     Indication: DIABETES MELLITUS
     Dates: start: 201404
  3. LANTUS [Concomitant]
     Indication: DIABETES MELLITUS
     Dosage: 4 UNITS AT NIGHT
     Route: 058
  4. HUMALOG [Concomitant]
     Indication: DIABETES MELLITUS
     Route: 058
  5. LISINOPRIL [Concomitant]
     Indication: HYPERTENSION
     Route: 048
  6. JANUVIA [Concomitant]
     Indication: DIABETES MELLITUS
  7. METOPROLOL SUCCINATE [Concomitant]
     Indication: CARDIAC DISORDER
     Route: 048
  8. RANITINE [Concomitant]
     Indication: DYSPEPSIA
     Route: 048
     Dates: start: 2012
  9. SIMCOR [Concomitant]
     Indication: BLOOD CHOLESTEROL INCREASED
     Dosage: 500/20MG AT NIGHTS
     Route: 048
  10. GABAPENTINE [Concomitant]
     Indication: NEURALGIA
     Route: 048
     Dates: start: 2013
  11. MIRTAZAPINE [Concomitant]
     Indication: DEPRESSION
     Route: 048
     Dates: start: 201308
  12. TAMSULOSIN HYDROCHLORIDE [Concomitant]
     Route: 048
  13. FINASTERIDE [Concomitant]
     Indication: PROSTATIC DISORDER
     Route: 048
  14. PROLIA [Concomitant]
     Indication: OSTEOPOROSIS
     Dates: start: 201308

REACTIONS (3)
  - Weight decreased [Not Recovered/Not Resolved]
  - Thirst [Not Recovered/Not Resolved]
  - Weight increased [Recovered/Resolved]
